FAERS Safety Report 7726553-3 (Version None)
Quarter: 2011Q3

REPORT INFORMATION
  Report Type: 
  Country: None (occurrence: None)
  Receive Date: 20110902
  Receipt Date: 20110824
  Transmission Date: 20111222
  Serious: Yes (Other)
  Sender: FDA-Public Use
  Company Number: PHHY2011FR72303

PATIENT
  Sex: Female
  Weight: 78.3 kg

DRUGS (7)
  1. PAROXETINE HCL [Concomitant]
     Dosage: 20 MG, 2DF ONCE DAILY
     Route: 048
     Dates: start: 20071201
  2. EFFEXOR [Concomitant]
     Dosage: 75 MG, CAPS ONCE DAILY
     Dates: start: 20070201
  3. LEVOTHYROXINE SODIUM [Concomitant]
  4. CLOZAPINE [Suspect]
     Dosage: UNK
     Dates: start: 20101215, end: 20110215
  5. CLOZAPINE [Suspect]
     Indication: IMPULSE-CONTROL DISORDER
     Dosage: 300 MG, [3DF DAILY (0-0-3)]
     Dates: start: 20061214
  6. PRAZEPAM [Concomitant]
     Dosage: 10 MG, 1 TO 2 TABLETS PER DAY
  7. EFFEXOR [Concomitant]
     Dosage: 75 MG, BID

REACTIONS (8)
  - WEIGHT INCREASED [None]
  - DRUG INEFFECTIVE [None]
  - ABNORMAL BEHAVIOUR [None]
  - SOMNOLENCE [None]
  - LETHARGY [None]
  - DEPRESSION [None]
  - ANXIETY [None]
  - AUTONOMIC NERVOUS SYSTEM IMBALANCE [None]
